FAERS Safety Report 5521688-8 (Version None)
Quarter: 2007Q4

REPORT INFORMATION
  Report Type: 
  Country: None (occurrence: None)
  Receive Date: 20071120
  Receipt Date: 20071115
  Transmission Date: 20080405
  Serious: Yes (Life-Threatening, Hospitalization)
  Sender: FDA-Public Use
  Company Number: PHBS2007JP14383

PATIENT
  Age: 58 Year
  Sex: Female
  Weight: 49 kg

DRUGS (24)
  1. TOFRANIL [Suspect]
     Indication: DEPRESSION
     Dosage: 20 MG/D
     Route: 048
     Dates: start: 20070817, end: 20070821
  2. TOFRANIL [Suspect]
     Dosage: 30 MG/D
     Route: 048
     Dates: end: 20070816
  3. TOFRANIL [Suspect]
     Dosage: 10 MG/DAY
     Route: 048
     Dates: start: 20070822, end: 20070831
  4. TOFRANIL [Suspect]
     Dosage: 10 MG/DAY
     Dates: start: 20070911, end: 20070913
  5. AMOXAPINE [Suspect]
     Dosage: 75 MG/D
     Route: 048
     Dates: end: 20070816
  6. AMOXAPINE [Suspect]
     Dosage: 50 MG/D
     Route: 048
     Dates: start: 20070817, end: 20070919
  7. SEPAZON [Concomitant]
     Indication: ANXIETY
     Dosage: 6 MG/DAY
     Route: 048
  8. SEPAZON [Concomitant]
     Dosage: 4 MG/DAY
     Route: 048
  9. SEPAZON [Concomitant]
     Dosage: 2 MG/DAY
     Route: 048
     Dates: end: 20070919
  10. ARTIST [Concomitant]
     Indication: ARRHYTHMIA
     Dosage: 10 MG/DAY
     Route: 048
  11. ARTIST [Concomitant]
     Dosage: 7.5 MG/DAY
     Route: 048
  12. ARTIST [Concomitant]
     Dosage: 10 MG/DAY
     Route: 048
  13. LIVALO KOWA [Concomitant]
     Indication: HYPERLIPIDAEMIA
     Dosage: 2 MG/DAY
     Route: 048
  14. EPADEL [Concomitant]
     Indication: HYPERLIPIDAEMIA
     Dosage: 1800 MG/DAY
     Route: 048
  15. ASPIRIN [Concomitant]
     Indication: THROMBOSIS PROPHYLAXIS
     Dosage: 100 MG/DAY
     Route: 048
  16. ENALAPRIL MALEATE [Concomitant]
     Indication: HYPERTENSION
     Dosage: 2.5 MG/DAY
     Route: 048
  17. LANIRAPID [Concomitant]
     Indication: HYPERTENSION
     Dosage: 0.05 MG/DAY
     Route: 048
  18. BASEN [Concomitant]
     Indication: DIABETES MELLITUS
     Dosage: 0.6 MG/DAY
     Route: 048
     Dates: end: 20070926
  19. URINORM [Concomitant]
     Indication: HYPERURICAEMIA
     Dosage: 50 MG/DAY
     Route: 048
  20. PANALDINE [Concomitant]
     Indication: THROMBOSIS PROPHYLAXIS
     Dosage: 200 MG/DAY
     Route: 048
  21. LASIX [Concomitant]
     Indication: HYPERTENSION
     Dosage: 20 MG/DAY
     Route: 048
  22. TRICHLORMETHIAZIDE [Concomitant]
     Indication: HYPERTENSION
     Dosage: 2 MG/DAY
     Route: 048
     Dates: start: 20070811
  23. SIGMART [Concomitant]
     Indication: ANGINA PECTORIS
     Dosage: 5 MG/DAY
     Route: 048
  24. NOVORAPID [Concomitant]
     Indication: DIABETES MELLITUS
     Dosage: 12 DF/DAY
     Route: 042
     Dates: start: 20070810

REACTIONS (10)
  - ANXIETY [None]
  - BRAIN NATRIURETIC PEPTIDE INCREASED [None]
  - DEPRESSED LEVEL OF CONSCIOUSNESS [None]
  - DYSPNOEA [None]
  - HYPERGLYCAEMIA [None]
  - INSOMNIA [None]
  - LOSS OF CONSCIOUSNESS [None]
  - MALAISE [None]
  - MENTAL DISORDER [None]
  - TACHYCARDIA [None]
